FAERS Safety Report 20344799 (Version 1)
Quarter: 2022Q1

REPORT INFORMATION
  Report Type: Spontaneous
  Country: NL (occurrence: NL)
  Receive Date: 20220118
  Receipt Date: 20220118
  Transmission Date: 20220423
  Serious: Yes (Other)
  Sender: FDA-Public Use
  Company Number: NL-SUN PHARMACEUTICAL INDUSTRIES LTD-2022RR-324043

PATIENT
  Sex: Female
  Weight: 75 kg

DRUGS (5)
  1. ATORVASTATIN [Suspect]
     Active Substance: ATORVASTATIN
     Indication: Hypercholesterolaemia
     Dosage: 10 MILLIGRAM, DAILY, 1 X 1 PER DAY IN THE EVENING
     Route: 065
     Dates: end: 20210228
  2. SALBUTAMOL AEROSOL 100UG/DO / VENTOLIN  100 AER CFKVR 100MCG/DO SPB... [Concomitant]
     Indication: Product used for unknown indication
     Dosage: SOMETIMES VENTOLIN ()
     Route: 065
  3. DESLORATADINE TABLET 5MG / Brand name not specifiedDESLORATADINE TA... [Concomitant]
     Indication: Product used for unknown indication
     Dosage: 5 MILLIGRAM, DAILY, 1 X 1 PER DAY OF THE FIRST TWO.
     Route: 065
  4. NITROGLYCERINE SPRAY SUBLING. 0,4MG/DO / Brand name not specifiedNI... [Concomitant]
     Indication: Product used for unknown indication
     Dosage: SPORADICALLY ()
     Route: 065
  5. BUPROPION TABLET MGA 150MG / WELLBUTRIN XR TABLET MGA 150MGWELLBUTR... [Concomitant]
     Indication: Product used for unknown indication
     Dosage: 1 DOSAGE FORM, DAILY, 1 X 1 PER DAY OF THE FIRST TWO.
     Route: 065

REACTIONS (2)
  - Muscle rupture [Recovering/Resolving]
  - Muscle spasms [Recovering/Resolving]
